FAERS Safety Report 7013822-8 (Version None)
Quarter: 2010Q3

REPORT INFORMATION
  Report Type: 
  Country: None (occurrence: None)
  Receive Date: 20100924
  Receipt Date: 20100824
  Transmission Date: 20110219
  Serious: No
  Sender: FDA-Public Use
  Company Number: US-BAYER-201031970NA

PATIENT
  Age: 17 Year
  Sex: Female
  Weight: 50 kg

DRUGS (1)
  1. ULTRAVIST 370 [Suspect]
     Indication: COMPUTERISED TOMOGRAM
     Dosage: AS USED: 80 ML  UNIT DOSE: 300 ML
     Route: 042
     Dates: start: 20100824, end: 20100824

REACTIONS (3)
  - NASAL CONGESTION [None]
  - PRURITUS [None]
  - SNEEZING [None]
